FAERS Safety Report 25595171 (Version 1)
Quarter: 2025Q3

REPORT INFORMATION
  Report Type: Report from Study
  Country: US (occurrence: US)
  Receive Date: 20250723
  Receipt Date: 20250723
  Transmission Date: 20251021
  Serious: Yes (Death)
  Sender: ABBVIE
  Company Number: US-ABBVIE-6382066

PATIENT
  Age: 78 Year
  Sex: Female

DRUGS (1)
  1. SYNTHROID [Suspect]
     Active Substance: LEVOTHYROXINE SODIUM
     Indication: Product used for unknown indication
     Dosage: 112 MICROGRAMS, 1 ONE TABLET DAILY, QUANTITY 90, DAYS SUPPLY 90 AND NATIONAL DRUG CODE 00074-9296-90
     Route: 048
     Dates: start: 202105

REACTIONS (2)
  - Platelet count decreased [Fatal]
  - Dementia [Fatal]

NARRATIVE: CASE EVENT DATE: 20250101
